FAERS Safety Report 12069711 (Version 3)
Quarter: 2016Q1

REPORT INFORMATION
  Report Type: Spontaneous
  Country: US (occurrence: US)
  Receive Date: 20160211
  Receipt Date: 20160304
  Transmission Date: 20160526
  Serious: Yes (Other)
  Sender: FDA-Public Use
  Company Number: US-ROCHE-1709563

PATIENT
  Age: 8 Year
  Sex: Female

DRUGS (1)
  1. TAMIFLU [Suspect]
     Active Substance: OSELTAMIVIR PHOSPHATE
     Indication: INFLUENZA
     Dosage: 1 TEASPOON ONCE
     Route: 048
     Dates: start: 20160209, end: 20160209

REACTIONS (6)
  - Hallucination [Recovering/Resolving]
  - Feeling abnormal [Unknown]
  - Vomiting [Recovered/Resolved]
  - Nightmare [Unknown]
  - Staring [Recovered/Resolved]
  - Epistaxis [Unknown]
